FAERS Safety Report 8904548 (Version 1)
Quarter: 2012Q4

REPORT INFORMATION
  Report Type: 
  Country: SE (occurrence: SE)
  Receive Date: 20121113
  Receipt Date: 20121113
  Transmission Date: 20130627
  Serious: Yes (Other)
  Sender: FDA-Public Use
  Company Number: SE-ELI_LILLY_AND_COMPANY-SE201211002162

PATIENT
  Sex: Female

DRUGS (3)
  1. ZYPREXA [Suspect]
     Indication: BIPOLAR DISORDER
     Dosage: 5 mg, qd
     Route: 048
     Dates: start: 20121019
  2. FLUOXETINE HYDROCHLORIDE [Concomitant]
  3. LITHIUM [Concomitant]

REACTIONS (1)
  - Oedema [Recovering/Resolving]
